FAERS Safety Report 10063073 (Version 3)
Quarter: 2014Q2

REPORT INFORMATION
  Report Type: Spontaneous
  Country: JP (occurrence: JP)
  Receive Date: 20140407
  Receipt Date: 20140519
  Transmission Date: 20141212
  Serious: Yes (Hospitalization, Other)
  Sender: FDA-Public Use
  Company Number: JP-PFIZER INC-2013361009

PATIENT
  Age: 27 Year
  Sex: Female

DRUGS (4)
  1. FOSPHENYTOIN SODIUM [Suspect]
     Indication: ENCEPHALITIS AUTOIMMUNE
     Dosage: UNK
     Route: 041
  2. VIDARABINE [Suspect]
     Indication: ENCEPHALITIS AUTOIMMUNE
     Dosage: UNK
     Route: 041
  3. DEXAMETHASONE [Suspect]
     Indication: ENCEPHALITIS AUTOIMMUNE
     Dosage: UNK
     Route: 042
  4. PHENOBARBITAL [Suspect]
     Indication: ENCEPHALITIS AUTOIMMUNE
     Dosage: UNK, AS NEEDED
     Route: 041

REACTIONS (2)
  - Pneumonia [Recovering/Resolving]
  - Thrombocytopenia [Recovering/Resolving]
